FAERS Safety Report 5541888-0 (Version None)
Quarter: 2007Q4

REPORT INFORMATION
  Report Type: 
  Country: None (occurrence: None)
  Receive Date: 20071210
  Receipt Date: 20071130
  Transmission Date: 20080405
  Serious: Yes (Hospitalization)
  Sender: FDA-Public Use
  Company Number: JP-BAYER-200710953BYL

PATIENT
  Age: 72 Year
  Sex: Female
  Weight: 53 kg

DRUGS (10)
  1. ASPIRIN [Suspect]
     Indication: ANTIPLATELET THERAPY
     Dosage: TOTAL DAILY DOSE: 100 MG  UNIT DOSE: 100 MG
     Route: 048
     Dates: start: 20050530
  2. CALONAL [Suspect]
     Indication: PAIN IN EXTREMITY
     Dosage: TOTAL DAILY DOSE: 200 MG  UNIT DOSE: 200 MG
     Route: 048
  3. PENFILL 30R [Concomitant]
     Route: 040
  4. URSO 250 [Concomitant]
     Dosage: UNIT DOSE: 100 MG
     Route: 048
  5. NORVASC [Concomitant]
     Dosage: TOTAL DAILY DOSE: 5 MG  UNIT DOSE: 5 MG
     Route: 048
  6. AMARYL [Concomitant]
     Dosage: AS USED: 1 MG  UNIT DOSE: 1 MG
     Route: 048
  7. BLOPRESS [Concomitant]
     Dosage: AS USED: 8 MG  UNIT DOSE: 8 MG
     Route: 048
  8. ITOROL [Concomitant]
     Dosage: UNIT DOSE: 20 MG
     Route: 048
  9. HEAVY MAGNESIUM OXIDE [Concomitant]
     Route: 048
  10. MOHRUS TAPE [Concomitant]
     Route: 062

REACTIONS (2)
  - GASTRIC ULCER HAEMORRHAGE [None]
  - HAEMATEMESIS [None]
